FAERS Safety Report 5396448-1 (Version None)
Quarter: 2007Q3

REPORT INFORMATION
  Report Type: 
  Country: None (occurrence: None)
  Receive Date: 20070725
  Receipt Date: 20070713
  Transmission Date: 20080115
  Serious: Yes (Hospitalization)
  Sender: FDA-Public Use
  Company Number: US-ELI_LILLY_AND_COMPANY-US_0511123740

PATIENT
  Age: 78 Year
  Sex: Female

DRUGS (8)
  1. NORVASC [Concomitant]
  2. LEVOTHYROXINE SODIUM [Concomitant]
     Indication: THYROID DISORDER
  3. PRAVACHOL [Concomitant]
  4. ASPIRIN [Concomitant]
  5. CALCIUM WITH VITAMIN D [Concomitant]
  6. MULTI-VITAMINS [Concomitant]
  7. CORDARONE                               /NET/ [Concomitant]
  8. FORTEO [Suspect]
     Indication: OSTEOPOROSIS
     Dosage: 20 UG, DAILY (1/D)
     Dates: start: 20050621, end: 20070622

REACTIONS (5)
  - BACK PAIN [None]
  - BEDRIDDEN [None]
  - COMPRESSION FRACTURE [None]
  - MOBILITY DECREASED [None]
  - PHARMACEUTICAL PRODUCT COMPLAINT [None]
